FAERS Safety Report 19003377 (Version 1)
Quarter: 2021Q1

REPORT INFORMATION
  Report Type: Spontaneous
  Country: US (occurrence: US)
  Receive Date: 20210312
  Receipt Date: 20210312
  Transmission Date: 20210420
  Serious: No
  Sender: FDA-Public Use
  Company Number: US-DSJP-DSU-2021-106586

PATIENT
  Sex: Female

DRUGS (3)
  1. TURALIO [Suspect]
     Active Substance: PEXIDARTINIB HYDROCHLORIDE
     Dosage: 1 CAP Q AM AND 2 CAPS
     Route: 048
     Dates: start: 202003, end: 202009
  2. TURALIO [Suspect]
     Active Substance: PEXIDARTINIB HYDROCHLORIDE
     Indication: BONE GIANT CELL TUMOUR MALIGNANT
     Dosage: 2 DF, BID
     Route: 048
     Dates: start: 201910, end: 202003
  3. TURALIO [Suspect]
     Active Substance: PEXIDARTINIB HYDROCHLORIDE
     Dosage: 1 DF, BID
     Route: 048
     Dates: start: 202009

REACTIONS (4)
  - Periorbital swelling [Unknown]
  - Nausea [Unknown]
  - Headache [Unknown]
  - Sunburn [Unknown]
